FAERS Safety Report 7581114-4 (Version None)
Quarter: 2011Q2

REPORT INFORMATION
  Report Type: 
  Country: None (occurrence: None)
  Receive Date: 20110629
  Receipt Date: 20110620
  Transmission Date: 20111010
  Serious: Yes (Hospitalization)
  Sender: FDA-Public Use
  Company Number: BR-ASTRAZENECA-2011SE29786

PATIENT
  Age: 70 Year
  Sex: Male
  Weight: 68 kg

DRUGS (4)
  1. ATACAND HCT [Suspect]
     Indication: HYPERTENSION
     Dosage: 16/12.5 MG HALF TABLET DAILY
     Route: 048
     Dates: start: 20070101, end: 20110301
  2. ATACAND [Suspect]
     Route: 048
     Dates: start: 20110301
  3. OMEPRAZOLE [Concomitant]
     Indication: GASTRITIS
     Route: 048
     Dates: end: 20110401
  4. SERTRALINE [Concomitant]
     Indication: DEPRESSION
     Route: 048
     Dates: start: 20091101

REACTIONS (5)
  - PROSTATE CANCER [None]
  - URINARY INCONTINENCE [None]
  - DYSPEPSIA [None]
  - PROSTATIC OPERATION [None]
  - ABDOMINAL PAIN UPPER [None]
